FAERS Safety Report 22060287 (Version 1)
Quarter: 2023Q1

REPORT INFORMATION
  Report Type: Spontaneous
  Country: US (occurrence: US)
  Receive Date: 20230303
  Receipt Date: 20230303
  Transmission Date: 20230417
  Serious: No
  Sender: FDA-Public Use
  Company Number: US-VYERA PHARMACEUTICALS, LLC-2022VYE00016

PATIENT
  Sex: Female
  Weight: 90.718 kg

DRUGS (2)
  1. DARAPRIM [Suspect]
     Active Substance: PYRIMETHAMINE
     Indication: Toxoplasmosis
     Dosage: 200 MG, 1X/DAY ON DAY 1
  2. DARAPRIM [Suspect]
     Active Substance: PYRIMETHAMINE
     Dosage: 75 MG, 1X/DAY THEREAFTER

REACTIONS (3)
  - Chest pain [Recovering/Resolving]
  - Back pain [Recovering/Resolving]
  - Off label use [Not Recovered/Not Resolved]
